FAERS Safety Report 6377127-0 (Version None)
Quarter: 2009Q3

REPORT INFORMATION
  Report Type: 
  Country: None (occurrence: None)
  Receive Date: 20090923
  Receipt Date: 20090923
  Transmission Date: 20100115
  Serious: Yes (Other)
  Sender: FDA-Public Use
  Company Number: None

PATIENT
  Age: 54 Year
  Sex: Female
  Weight: 81.6475 kg

DRUGS (3)
  1. PRISTIQ [Suspect]
     Indication: DEPRESSION
     Dosage: ONE ONE TIME DAILY PO 9 1/2 MO.
     Route: 048
     Dates: start: 20081120, end: 20090912
  2. PRISTIQ [Suspect]
     Indication: FATIGUE
     Dosage: ONE ONE TIME DAILY PO 9 1/2 MO.
     Route: 048
     Dates: start: 20081120, end: 20090912
  3. PRISTIQ [Suspect]
     Indication: MOOD ALTERED
     Dosage: ONE ONE TIME DAILY PO 9 1/2 MO.
     Route: 048
     Dates: start: 20081120, end: 20090912

REACTIONS (6)
  - ASTHENIA [None]
  - DIZZINESS [None]
  - DRUG WITHDRAWAL SYNDROME [None]
  - IMPAIRED WORK ABILITY [None]
  - NAUSEA [None]
  - TINNITUS [None]
